FAERS Safety Report 8395061-1 (Version None)
Quarter: 2012Q1

REPORT INFORMATION
  Report Type: 
  Country: None (occurrence: None)
  Receive Date: 20120323
  Receipt Date: 20110610
  Transmission Date: 20120608
  Serious: Yes (Other)
  Sender: FDA-Public Use
  Company Number: 163-21880-11031818

PATIENT
  Age: 82 Year
  Sex: Female
  Weight: 77.5651 kg

DRUGS (1)
  1. REVLIMID [Suspect]
     Indication: MULTIPLE MYELOMA
     Dosage: 10 MG, QHS, PO
     Route: 048
     Dates: start: 20110201

REACTIONS (5)
  - SWELLING FACE [None]
  - RASH [None]
  - PRURITUS [None]
  - OEDEMA PERIPHERAL [None]
  - HYPERSENSITIVITY [None]
